FAERS Safety Report 7223679-8 (Version None)
Quarter: 2011Q1

REPORT INFORMATION
  Report Type: 
  Country: None (occurrence: None)
  Receive Date: 20110112
  Receipt Date: 20101012
  Transmission Date: 20110831
  Serious: No
  Sender: FDA-Public Use
  Company Number: US-ALLERGAN-1013113US

PATIENT
  Age: 63 Year
  Sex: Female

DRUGS (6)
  1. RESTASIS [Suspect]
     Indication: DRY EYE
     Dosage: 1 GTT, BID
     Route: 047
     Dates: start: 20100913
  2. ARTIFICIAL TEARS                   /00445101/ [Concomitant]
  3. MULTI-VITAMINS [Concomitant]
  4. CALCIUM +D [Concomitant]
  5. FOSAMAX [Concomitant]
     Indication: OSTEOPOROSIS
     Dosage: UNK
  6. GABAPENTIN [Concomitant]
     Indication: INSOMNIA

REACTIONS (2)
  - OCULAR HYPERAEMIA [None]
  - EYE PRURITUS [None]
